FAERS Safety Report 18004593 (Version 1)
Quarter: 2020Q3

REPORT INFORMATION
  Report Type: Spontaneous
  Country: US (occurrence: US)
  Receive Date: 20200709
  Receipt Date: 20200709
  Transmission Date: 20201103
  Serious: No
  Sender: FDA-Public Use
  Company Number: None

PATIENT

DRUGS (2)
  1. APIXABAN 10MG [Suspect]
     Active Substance: APIXABAN
  2. ENOXAPARIN 1MG/KG [Suspect]
     Active Substance: ENOXAPARIN

REACTIONS (1)
  - Labelled drug-drug interaction medication error [None]
